FAERS Safety Report 9335180 (Version 4)
Quarter: 2014Q1

REPORT INFORMATION
  Report Type: Report from Study
  Country: ES (occurrence: ES)
  Receive Date: 20130606
  Receipt Date: 20140205
  Transmission Date: 20141002
  Serious: Yes (Hospitalization)
  Sender: FDA-Public Use
  Company Number: ES-BAYER-2013-064113

PATIENT
  Age: 79 Year
  Sex: Male

DRUGS (13)
  1. ALPHARADIN [Suspect]
     Indication: PROSTATE CANCER
     Dosage: 50 KBQ/KG
     Route: 042
     Dates: start: 20130315, end: 20130315
  2. ALPHARADIN [Suspect]
     Indication: PROSTATE CANCER
     Dosage: 50 KBQ/KG
     Route: 042
     Dates: start: 20130416, end: 20130416
  3. ALPHARADIN [Suspect]
     Indication: PROSTATE CANCER
     Dosage: 50 KBQ/KG
     Route: 042
     Dates: start: 20130516, end: 20130516
  4. BISOPROLOL [Concomitant]
     Indication: HYPERTENSION
     Dosage: TOTAL DAILY DOSE 1.6 MG
     Route: 048
  5. DIGOXINE [Concomitant]
     Indication: CARDIAC DISORDER
     Dosage: UNK
     Route: 048
  6. OMEPRAZOLE [Concomitant]
     Indication: PROPHYLAXIS
     Dosage: TOTAL DAILY DOSE 20 MG
     Route: 048
  7. AMLODIPINE [Concomitant]
     Indication: HYPERTENSION
     Dosage: TOTAL DAILY DOSE 10 MG
  8. MASTICAL [Concomitant]
     Indication: MINERAL SUPPLEMENTATION
     Dosage: TOTAL DAILY DOSE 1 COMP
     Route: 048
     Dates: start: 20110930
  9. SINTROM [Concomitant]
     Indication: COAGULOPATHY
     Dosage: UNK
     Route: 048
  10. GABAPENTIN [Concomitant]
     Indication: PAIN
     Dosage: TOTAL DAILY DOSE 600 MG
     Dates: start: 20130228
  11. LORMETAZEPAM [Concomitant]
     Indication: PAIN
     Dosage: TOTAL DAILY DOSE 1 MG
     Route: 048
     Dates: start: 20130228
  12. AMITRIPTYLINE [Concomitant]
     Indication: ANXIETY
     Dosage: DAILY DOSE 25 MG
     Route: 048
  13. SIMVASTATIN [Concomitant]
     Indication: HYPERCHOLESTEROLAEMIA
     Dosage: UNK
     Route: 048

REACTIONS (1)
  - Pain [Recovered/Resolved]
